FAERS Safety Report 17433296 (Version 2)
Quarter: 2020Q1

REPORT INFORMATION
  Report Type: Spontaneous
  Country: ES (occurrence: ES)
  Receive Date: 20200219
  Receipt Date: 20200318
  Transmission Date: 20200409
  Serious: Yes (Other)
  Sender: FDA-Public Use
  Company Number: ES-AUROBINDO-AUR-APL-2020-008387

PATIENT
  Age: 11 Year
  Sex: Female
  Weight: 40 kg

DRUGS (11)
  1. CLOBAZAM. [Concomitant]
     Active Substance: CLOBAZAM
     Indication: PRODUCT USED FOR UNKNOWN INDICATION
     Dosage: 35 MILLIGRAM, ONCE A DAY (5MG-10MG-20MG)
     Route: 065
  2. VALPROIC ACID. [Suspect]
     Active Substance: VALPROIC ACID
     Indication: PRODUCT USED FOR UNKNOWN INDICATION
     Dosage: 3.4 MILLILITER, 3 TIMES A DAY
     Route: 065
     Dates: start: 20190503, end: 20190704
  3. VALPROIC ACID. [Interacting]
     Active Substance: VALPROIC ACID
     Dosage: 0.7 MILLILITER, 3 TIMES A DAY
     Route: 065
     Dates: start: 20190801, end: 20190809
  4. CANNABIDIOL [Interacting]
     Active Substance: CANNABIDIOL
     Dosage: 400 MILLIGRAM, ONCE A DAY (10 MG/KG)
     Route: 048
     Dates: start: 20190502, end: 20190528
  5. VALPROIC ACID. [Interacting]
     Active Substance: VALPROIC ACID
     Dosage: 3 MILLILITER, 3 TIMES A DAY
     Route: 065
     Dates: start: 20190705, end: 20190723
  6. CANNABIDIOL [Interacting]
     Active Substance: CANNABIDIOL
     Dosage: 800 MILLIGRAM (20 MG/KG, 800 MILLIGRAM, QD)
     Route: 048
     Dates: start: 20190403, end: 20190502
  7. CANNABIDIOL [Interacting]
     Active Substance: CANNABIDIOL
     Dosage: 800 MILLIGRAM, ONCE A DAY (20 MG/KG)
     Route: 048
     Dates: start: 20190809
  8. LAMOTRIGINE. [Concomitant]
     Active Substance: LAMOTRIGINE
     Indication: PRODUCT USED FOR UNKNOWN INDICATION
     Dosage: 60 MILLIGRAM, TWO TIMES A DAY
     Route: 065
  9. VALPROIC ACID. [Interacting]
     Active Substance: VALPROIC ACID
     Dosage: 2.5 MILLILITER, 3 TIMES A DAY
     Route: 065
     Dates: start: 20190724, end: 20190731
  10. CANNABIDIOL [Interacting]
     Active Substance: CANNABIDIOL
     Indication: PRODUCT USED FOR UNKNOWN INDICATION
     Dosage: ASCENDING DOSE
     Route: 048
  11. CANNABIDIOL [Interacting]
     Active Substance: CANNABIDIOL
     Dosage: 600 MILLIGRAM (15 MG/KG)
     Route: 048
     Dates: start: 20190529, end: 20190808

REACTIONS (8)
  - Anticonvulsant drug level increased [Recovered/Resolved]
  - Contusion [Recovered/Resolved]
  - Thrombocytopenia [Recovered/Resolved]
  - Seizure [Recovered/Resolved]
  - Drug interaction [Recovered/Resolved]
  - Thrombocytopenic purpura [Recovered/Resolved]
  - Purpura [Recovered/Resolved]
  - Epistaxis [Recovered/Resolved]

NARRATIVE: CASE EVENT DATE: 20190628
